FAERS Safety Report 12771145 (Version 2)
Quarter: 2016Q3

REPORT INFORMATION
  Report Type: Spontaneous
  Country: GB (occurrence: GB)
  Receive Date: 20160922
  Receipt Date: 20160922
  Transmission Date: 20161109
  Serious: Yes (Hospitalization)
  Sender: FDA-Public Use
  Company Number: GB-SA-2016SA160603

PATIENT
  Sex: Female

DRUGS (2)
  1. CLEXANE [Suspect]
     Active Substance: ENOXAPARIN SODIUM
     Indication: EMBOLISM
     Route: 065
  2. CLEXANE [Suspect]
     Active Substance: ENOXAPARIN SODIUM
     Indication: EMBOLISM
     Dosage: FREQUENCY: 23 TIMES APPROXIMATELY 1.3 G OF CLEXANE
     Route: 065
     Dates: start: 20160829, end: 20160829

REACTIONS (2)
  - Suicide attempt [Unknown]
  - Intentional overdose [Unknown]
